FAERS Safety Report 5603369-5 (Version None)
Quarter: 2008Q1

REPORT INFORMATION
  Report Type: 
  Country: None (occurrence: None)
  Receive Date: 20080122
  Receipt Date: 20080110
  Transmission Date: 20080703
  Serious: Yes (Hospitalization)
  Sender: FDA-Public Use
  Company Number: AZADE200800014

PATIENT
  Sex: Male

DRUGS (1)
  1. VIDAZA [Suspect]
     Indication: MYELODYSPLASTIC SYNDROME
     Dosage: (75 MG/M2), SUBCUTANEOUS
     Route: 058

REACTIONS (3)
  - INJECTION SITE CELLULITIS [None]
  - INJECTION SITE NODULE [None]
  - VASCULITIS NECROTISING [None]
